FAERS Safety Report 6662266-7 (Version None)
Quarter: 2010Q1

REPORT INFORMATION
  Report Type: 
  Country: None (occurrence: None)
  Receive Date: 20100331
  Receipt Date: 20100323
  Transmission Date: 20100710
  Serious: Yes (Other)
  Sender: FDA-Public Use
  Company Number: US-MYLANLABS-2010S1004893

PATIENT
  Age: 76 Year
  Sex: Male

DRUGS (8)
  1. GLIMEPIRIDE [Suspect]
     Indication: DIABETES MELLITUS
     Route: 048
     Dates: start: 20091029, end: 20100103
  2. ALL OTHER THERAPEUTIC PRODUCTS [Suspect]
     Indication: DIABETES MELLITUS
     Route: 048
  3. DILTIAZEM HCL [Suspect]
     Indication: HYPERTENSION
     Dates: start: 20071022
  4. FUROSEMIDE [Suspect]
     Indication: HYPERTENSION
     Route: 048
     Dates: start: 20071022
  5. POTASSIUM GLUCONATE TAB [Suspect]
     Indication: SUPPLEMENTATION THERAPY
     Route: 048
     Dates: start: 20081016
  6. FISH OIL [Suspect]
     Indication: SUPPLEMENTATION THERAPY
     Route: 048
     Dates: start: 20081016
  7. WARFARIN SODIUM [Suspect]
     Indication: EMBOLISM
     Route: 048
     Dates: start: 20080115
  8. WARFARIN SODIUM [Suspect]
     Route: 048
     Dates: start: 20080115

REACTIONS (1)
  - PROSTATE CANCER [None]
